APPROVED DRUG PRODUCT: GENTAMICIN SULFATE
Active Ingredient: GENTAMICIN SULFATE
Strength: EQ 10MG BASE/ML
Dosage Form/Route: INJECTABLE;INJECTION
Application: A062318 | Product #002
Applicant: WATSON LABORATORIES INC
Approved: Approved Prior to Jan 1, 1982 | RLD: No | RS: No | Type: DISCN